FAERS Safety Report 4551914-3 (Version None)
Quarter: 2005Q1

REPORT INFORMATION
  Report Type: 
  Country: None (occurrence: None)
  Receive Date: 20050110
  Receipt Date: 20050104
  Transmission Date: 20050727
  Serious: Yes (Other)
  Sender: FDA-Public Use
  Company Number: 2004026162

PATIENT
  Age: 66 Year
  Sex: Female

DRUGS (4)
  1. NEURONTIN [Suspect]
     Indication: PAIN
     Dosage: 900 MG (300 MG, 3 IN 1 D)
     Route: 048
     Dates: start: 20031218, end: 20040116
  2. APOREX                  (DEXTROPOXYPHENE HYDROCHLORIDE, PARACEMATOL) [Concomitant]
  3. HYDROXYZINE HYDROCHLORIDE             (HYDROXYLZINE HYDROCHLORIDE) [Concomitant]
  4. THIOCOLCHICOSIDE           (THIOCOLCHICOSIDE) [Concomitant]

REACTIONS (1)
  - HEPATITIS ACUTE [None]
